APPROVED DRUG PRODUCT: AMOXIL
Active Ingredient: AMOXICILLIN
Strength: 875MG **Federal Register determination that product was not discontinued or withdrawn for safety or effectiveness reasons**
Dosage Form/Route: TABLET;ORAL
Application: N050754 | Product #001
Applicant: US ANTIBIOTICS LLC
Approved: Jul 10, 1998 | RLD: Yes | RS: No | Type: DISCN